FAERS Safety Report 15311027 (Version 1)
Quarter: 2018Q3

REPORT INFORMATION
  Report Type: Spontaneous
  Country: US (occurrence: US)
  Receive Date: 20180823
  Receipt Date: 20180823
  Transmission Date: 20181010
  Serious: No
  Sender: FDA-Public Use
  Company Number: US-APOTEX-2018AP016401

PATIENT
  Sex: Female

DRUGS (1)
  1. FLUTICASONE. [Suspect]
     Active Substance: FLUTICASONE
     Indication: PRODUCT USED FOR UNKNOWN INDICATION
     Dosage: UNK
     Route: 065

REACTIONS (7)
  - Rhinitis [Unknown]
  - Dyspnoea [Unknown]
  - Ear infection [Unknown]
  - Respiration abnormal [Unknown]
  - Sinusitis [Unknown]
  - Malaise [Unknown]
  - Nasal congestion [Unknown]
